FAERS Safety Report 9083146 (Version 1)
Quarter: 2013Q1

REPORT INFORMATION
  Report Type: Report from Study
  Country: US (occurrence: US)
  Receive Date: 20130130
  Receipt Date: 20130130
  Transmission Date: 20140127
  Serious: No
  Sender: FDA-Public Use
  Company Number: US-ABBOTT-12P-163-0965357-00

PATIENT
  Age: 68 Year
  Sex: Female
  Weight: 69.46 kg

DRUGS (5)
  1. HUMIRA 40 MG/0.8 ML PEN [Suspect]
     Indication: RHEUMATOID ARTHRITIS
     Dosage: CURASCRIPT DOES NOT COLLECT LOT NUMBERS AND THE PATIENT NO LONGER HAD THE PEN OR THE BOX.
     Route: 058
     Dates: start: 20120415
  2. ENBREL [Suspect]
     Indication: RHEUMATOID ARTHRITIS
     Dates: start: 2010, end: 2012
  3. PROBIOTICS [Suspect]
     Indication: DYSPEPSIA
     Dates: start: 201205
  4. LEVOTHYROXINE [Concomitant]
     Indication: HYPOTHYROIDISM
  5. ^A TON^ OF UNKNOWN MEDICATIONS [Concomitant]
     Indication: PRODUCT USED FOR UNKNOWN INDICATION

REACTIONS (4)
  - Pruritus [Not Recovered/Not Resolved]
  - Muscle spasms [Not Recovered/Not Resolved]
  - Formication [Not Recovered/Not Resolved]
  - Formication [Not Recovered/Not Resolved]
